FAERS Safety Report 6287771-7 (Version None)
Quarter: 2009Q3

REPORT INFORMATION
  Report Type: 
  Country: None (occurrence: None)
  Receive Date: 20090720
  Receipt Date: 20090415
  Transmission Date: 20100115
  Serious: Yes (Hospitalization)
  Sender: FDA-Public Use
  Company Number: A-US2005-15279

PATIENT
  Age: 32 Year
  Sex: Female
  Weight: 62.6 kg

DRUGS (11)
  1. VENTAVIS [Suspect]
     Indication: PULMONARY ARTERIAL HYPERTENSION
     Dosage: 5 UG, RESPIRATORY ; 2.5 UG, RESPIRATORY
     Route: 055
     Dates: start: 20050607, end: 20050623
  2. VENTAVIS [Suspect]
     Indication: PULMONARY ARTERIAL HYPERTENSION
     Dosage: 5 UG, RESPIRATORY ; 2.5 UG, RESPIRATORY
     Route: 055
     Dates: start: 20050101
  3. TRACLEER [Suspect]
     Indication: PULMONARY ARTERIAL HYPERTENSION
     Dosage: ORAL
     Route: 048
  4. PLAQUENI (HYDROXYCHLOROQUINE SULFATE) [Concomitant]
  5. PREDNISONE TAB [Concomitant]
  6. WARFARIN SODIUM [Concomitant]
  7. LASIX [Concomitant]
  8. POTASSIUM (POTASSIUM) [Concomitant]
  9. PROCARDIA XL [Concomitant]
  10. DIGOXIN [Concomitant]
  11. FERROUS SULFATE TAB [Concomitant]

REACTIONS (3)
  - CHEST PAIN [None]
  - DYSPNOEA [None]
  - HEADACHE [None]
